FAERS Safety Report 4953807-6 (Version None)
Quarter: 2006Q1

REPORT INFORMATION
  Report Type: 
  Country: None (occurrence: None)
  Receive Date: 20060327
  Receipt Date: 20060313
  Transmission Date: 20060701
  Serious: Yes (Other)
  Sender: FDA-Public Use
  Company Number: CA-AMGEN-US172224

PATIENT
  Sex: Female

DRUGS (15)
  1. ENBREL [Suspect]
     Indication: RHEUMATOID ARTHRITIS
     Route: 058
     Dates: start: 20060302, end: 20060303
  2. VOLTAREN [Concomitant]
  3. ATARAX [Concomitant]
  4. ATIVAN [Concomitant]
  5. TRAZODONE HCL [Concomitant]
  6. PLAQUENIL [Concomitant]
  7. MAXERAN [Concomitant]
  8. PREDNISOLONE [Concomitant]
  9. NORVASC [Concomitant]
  10. FOLIC ACID [Concomitant]
  11. MORPHINE SULFATE [Concomitant]
  12. SULFASALAZINE [Concomitant]
  13. VITAMIN D [Concomitant]
  14. MULTIVITAMIN [Concomitant]
  15. PANTOPRAZOLE SODIUM [Concomitant]

REACTIONS (7)
  - CHEST PAIN [None]
  - CONDITION AGGRAVATED [None]
  - HYPERSENSITIVITY [None]
  - PAIN IN EXTREMITY [None]
  - RASH PRURITIC [None]
  - RHEUMATOID ARTHRITIS [None]
  - SWELLING FACE [None]
